FAERS Safety Report 8320540-2 (Version None)
Quarter: 2012Q2

REPORT INFORMATION
  Report Type: 
  Country: None (occurrence: None)
  Receive Date: 20120430
  Receipt Date: 20120424
  Transmission Date: 20120825
  Serious: Yes (Other)
  Sender: FDA-Public Use
  Company Number: US-PFIZER INC-2012062028

PATIENT
  Sex: Male

DRUGS (5)
  1. CYMBALTA [Concomitant]
     Dosage: UNK
  2. NEURONTIN [Suspect]
     Dosage: 800, FOUR TIMES DAILY
  3. HUMALOG [Concomitant]
     Dosage: UNK
  4. NORVASC [Concomitant]
     Dosage: UNK
  5. LANTUS [Concomitant]
     Dosage: UNK

REACTIONS (1)
  - DIABETIC COMA [None]
